FAERS Safety Report 7554920-X (Version None)
Quarter: 2011Q2

REPORT INFORMATION
  Report Type: 
  Country: None (occurrence: None)
  Receive Date: 20110617
  Receipt Date: 20110607
  Transmission Date: 20111010
  Serious: Yes (Other)
  Sender: FDA-Public Use
  Company Number: NL-ELI_LILLY_AND_COMPANY-NL201106001826

PATIENT
  Sex: Female
  Weight: 133 kg

DRUGS (3)
  1. GLIMEPIRIDE A [Concomitant]
     Dosage: 3 MG, QD
     Dates: start: 20100721
  2. CRESTOR [Concomitant]
     Dosage: 10 MG, QD
     Dates: start: 20080116
  3. EXENATIDE [Suspect]
     Indication: TYPE 2 DIABETES MELLITUS
     Dosage: 10 UG, BID
     Dates: start: 20100918

REACTIONS (1)
  - PANCREATITIS [None]
